FAERS Safety Report 9572034 (Version 3)
Quarter: 2013Q4

REPORT INFORMATION
  Report Type: Spontaneous
  Country: JP (occurrence: JP)
  Receive Date: 20131001
  Receipt Date: 20131216
  Transmission Date: 20140711
  Serious: Yes (Other)
  Sender: FDA-Public Use
  Company Number: JP-PFIZER INC-2013278491

PATIENT
  Age: 42 Year
  Sex: 0

DRUGS (1)
  1. CHAMPIX [Suspect]
     Dosage: UNK
     Route: 048

REACTIONS (2)
  - Amnesia [Recovered/Resolved]
  - Cerebrovascular disorder [Recovered/Resolved]
